FAERS Safety Report 10367766 (Version 1)
Quarter: 2014Q3

REPORT INFORMATION
  Report Type: Spontaneous
  Country: US (occurrence: None)
  Receive Date: 20140806
  Receipt Date: 20140806
  Transmission Date: 20150326
  Serious: Yes (Hospitalization)
  Sender: FDA-Public Use
  Company Number: None

PATIENT
  Age: 41 Year
  Sex: Female
  Weight: 57.15 kg

DRUGS (1)
  1. PROPOFOL. [Suspect]
     Active Substance: PROPOFOL
     Indication: DRUG THERAPY
     Dosage: UNKNOWN TO ME, AS NEEDED, INTO A VEIN

REACTIONS (3)
  - Dizziness [None]
  - Pyrexia [None]
  - Asthenia [None]

NARRATIVE: CASE EVENT DATE: 20140804
